FAERS Safety Report 9116429 (Version 1)
Quarter: 2013Q1

REPORT INFORMATION
  Report Type: Spontaneous
  Country: US (occurrence: US)
  Receive Date: 20130225
  Receipt Date: 20130225
  Transmission Date: 20140127
  Serious: Yes (Other)
  Sender: FDA-Public Use
  Company Number: US-PFIZER INC-2013019392

PATIENT
  Age: 55 Year
  Sex: Female
  Weight: 74.83 kg

DRUGS (6)
  1. PRISTIQ [Suspect]
     Indication: SUICIDAL IDEATION
     Dosage: 50 MG, DAILY
  2. VILAZODONE [Concomitant]
     Indication: DEPRESSION
     Dosage: 40 MG, DAILY
  3. VILAZODONE [Concomitant]
     Indication: ANXIETY
  4. CLONAZEPAM [Concomitant]
     Indication: ANXIETY
     Dosage: 1 MG, 5X/DAY
  5. CLONAZEPAM [Concomitant]
     Indication: PANIC ATTACK
  6. MORPHINE [Concomitant]
     Indication: MIGRAINE
     Dosage: UNK

REACTIONS (3)
  - Suicide attempt [Unknown]
  - Myocardial infarction [Unknown]
  - Pulmonary embolism [Unknown]
